FAERS Safety Report 16804798 (Version 1)
Quarter: 2019Q3

REPORT INFORMATION
  Report Type: Report from Study
  Country: US (occurrence: US)
  Receive Date: 20190913
  Receipt Date: 20190913
  Transmission Date: 20191005
  Serious: Yes (Hospitalization)
  Sender: FDA-Public Use
  Company Number: US-PFIZER INC-2019374803

PATIENT
  Age: 83 Year
  Sex: Male
  Weight: 111.6 kg

DRUGS (30)
  1. ENTOSPLETINIB [Suspect]
     Active Substance: ENTOSPLETINIB
     Dosage: 200 MG, BID
     Route: 048
     Dates: start: 20180915, end: 20180916
  2. POTASSIUM CHLORIDE. [Concomitant]
     Active Substance: POTASSIUM CHLORIDE
  3. AZITHROMYCIN ANHYDROUS. [Concomitant]
     Active Substance: AZITHROMYCIN ANHYDROUS
  4. MAGNESIUM SULFATE. [Concomitant]
     Active Substance: MAGNESIUM SULFATE
  5. DEXTROSE IN WATER [Concomitant]
     Active Substance: DEXTROSE\WATER
  6. ROCEPHIN [Suspect]
     Active Substance: CEFTRIAXONE SODIUM
     Indication: PNEUMONIA
     Dosage: UNK
     Route: 042
     Dates: start: 20190811, end: 20190815
  7. ATENOLOL. [Concomitant]
     Active Substance: ATENOLOL
  8. CALCIUM GLUCONATE AND SODIUM CHLORIDE [Concomitant]
  9. SIMVASTATIN. [Concomitant]
     Active Substance: SIMVASTATIN
     Dosage: UNK
  10. HYDRALAZINE HYDROCHLORIDE. [Concomitant]
     Active Substance: HYDRALAZINE HYDROCHLORIDE
  11. TAMSULOSIN [Concomitant]
     Active Substance: TAMSULOSIN
  12. ZITHROMAX [Concomitant]
     Active Substance: AZITHROMYCIN DIHYDRATE
     Dosage: UNK
     Dates: start: 20190808
  13. ENTOSPLETINIB [Suspect]
     Active Substance: ENTOSPLETINIB
     Indication: HAEMATOLOGICAL MALIGNANCY
     Dosage: 200 MG, BID
     Route: 048
     Dates: start: 20151221, end: 20180723
  14. ALBUTEROL SULFATE;IPRATROPIUM BROMIDE [Concomitant]
  15. SODIUM BIPHOSPHATE [Concomitant]
  16. COUMADIN [Concomitant]
     Active Substance: WARFARIN SODIUM
  17. METOPROLOL TARTRATE. [Concomitant]
     Active Substance: METOPROLOL TARTRATE
     Dosage: UNK
     Dates: start: 201504
  18. PHOSPHORUS [Concomitant]
     Active Substance: PHOSPHORUS
  19. ASPIRIN [ACETYLSALICYLIC ACID] [Concomitant]
     Active Substance: ASPIRIN
     Dosage: UNK
     Dates: start: 20161108
  20. ENTOSPLETINIB [Suspect]
     Active Substance: ENTOSPLETINIB
     Dosage: 200 MG, BID
     Route: 048
     Dates: start: 20180918
  21. DOXEPIN [Concomitant]
     Active Substance: DOXEPIN
     Dosage: UNK
     Dates: start: 20170801
  22. EXELON [Concomitant]
     Active Substance: RIVASTIGMINE TARTRATE
     Dosage: UNK
     Dates: start: 2010
  23. POTASSIUM BICARBONATE/CITRIC ACID [Concomitant]
  24. POTASSIUM PHOSPHATES [Concomitant]
     Active Substance: POTASSIUM PHOSPHATE, DIBASIC\POTASSIUM PHOSPHATE, MONOBASIC
  25. ELIOUIS [Concomitant]
     Dosage: UNK
     Dates: start: 20180914
  26. ASPIRIN [ACETYLSALICYLIC ACID] [Concomitant]
     Active Substance: ASPIRIN
     Dosage: UNK
  27. ZITHROMAX [Suspect]
     Active Substance: AZITHROMYCIN DIHYDRATE
     Indication: PNEUMONIA
     Dosage: UNK
     Route: 048
     Dates: start: 20190811, end: 20190815
  28. APIXABAN [Concomitant]
     Active Substance: APIXABAN
  29. RIVASTIGMINE. [Concomitant]
     Active Substance: RIVASTIGMINE
  30. PREDNISONE. [Concomitant]
     Active Substance: PREDNISONE
     Dosage: UNK
     Dates: start: 20150611

REACTIONS (1)
  - Pneumonia [Recovered/Resolved]

NARRATIVE: CASE EVENT DATE: 20190811
